FAERS Safety Report 17679426 (Version 1)
Quarter: 2020Q2

REPORT INFORMATION
  Report Type: Spontaneous
  Country: US (occurrence: US)
  Receive Date: 20200416
  Receipt Date: 20200416
  Transmission Date: 20200714
  Serious: Yes (Hospitalization)
  Sender: FDA-Public Use
  Company Number: None

PATIENT
  Sex: Female

DRUGS (22)
  1. FAMOTIDINE. [Concomitant]
     Active Substance: FAMOTIDINE
  2. LEVOTHYROXIN [Concomitant]
     Active Substance: LEVOTHYROXINE
  3. VITAMIN D [Concomitant]
     Active Substance: VITAMIN D NOS
  4. COSENTYX [Suspect]
     Active Substance: SECUKINUMAB
     Indication: PSORIATIC ARTHROPATHY
     Route: 058
     Dates: start: 20131002
  5. LEVOFLOXACIN. [Concomitant]
     Active Substance: LEVOFLOXACIN
  6. SYNTHROID [Concomitant]
     Active Substance: LEVOTHYROXINE SODIUM
  7. NYSTATIN. [Concomitant]
     Active Substance: NYSTATIN
  8. AMOXICILLIN. [Concomitant]
     Active Substance: AMOXICILLIN
  9. LOSARTAN/HCT [Concomitant]
     Active Substance: HYDROCHLOROTHIAZIDE\LOSARTAN POTASSIUM
  10. METFORMIN [Concomitant]
     Active Substance: METFORMIN HYDROCHLORIDE
  11. CYANOCOBALAM [Concomitant]
     Active Substance: CYANOCOBALAMIN
  12. DOXYCYCL HYC [Concomitant]
  13. HYDROXYCHLOR [Concomitant]
     Active Substance: HYDROXYCHLOROQUINE
  14. LORAZEPAM. [Concomitant]
     Active Substance: LORAZEPAM
  15. OSELTAMIVIR [Concomitant]
     Active Substance: OSELTAMIVIR
  16. PANTOPRAZOLE [Concomitant]
     Active Substance: PANTOPRAZOLE
  17. ROSUVASTATIN. [Concomitant]
     Active Substance: ROSUVASTATIN
  18. CLONAZEPAM. [Concomitant]
     Active Substance: CLONAZEPAM
  19. METHYLPRED [Concomitant]
     Active Substance: METHYLPREDNISOLONE
  20. AMLODIPINE [Concomitant]
     Active Substance: AMLODIPINE BESYLATE
  21. FUROSEMIDE. [Concomitant]
     Active Substance: FUROSEMIDE
  22. PREDNISONE. [Concomitant]
     Active Substance: PREDNISONE

REACTIONS (2)
  - Lung disorder [None]
  - Pneumonia [None]
